FAERS Safety Report 10177330 (Version 3)
Quarter: 2014Q3

REPORT INFORMATION
  Report Type: Spontaneous
  Country: US (occurrence: US)
  Receive Date: 20140516
  Receipt Date: 20140731
  Transmission Date: 20150326
  Serious: Yes (Hospitalization)
  Sender: FDA-Public Use
  Company Number: US-ABBVIE-14P-163-1236673-00

PATIENT
  Age: 74 Year
  Sex: Female
  Weight: 76.27 kg

DRUGS (7)
  1. LISINOPRIL. [Concomitant]
     Active Substance: LISINOPRIL
     Indication: HYPERTENSION
  2. FORTEO [Concomitant]
     Active Substance: TERIPARATIDE
     Indication: OSTEOPOROSIS
  3. HUMIRA [Suspect]
     Active Substance: ADALIMUMAB
     Indication: RHEUMATOID ARTHRITIS
     Dates: start: 2013, end: 201309
  4. HUMIRA [Suspect]
     Active Substance: ADALIMUMAB
     Dates: start: 201404
  5. ATORVASTATIN [Concomitant]
     Active Substance: ATORVASTATIN
     Indication: BLOOD CHOLESTEROL INCREASED
  6. ATENOLOL. [Concomitant]
     Active Substance: ATENOLOL
     Indication: HYPERTENSION
  7. METHOTREXATE [Concomitant]
     Active Substance: METHOTREXATE
     Indication: RHEUMATOID ARTHRITIS

REACTIONS (13)
  - Tooth abscess [Recovered/Resolved]
  - Heart valve incompetence [Not Recovered/Not Resolved]
  - Arthralgia [Unknown]
  - Osteoarthritis [Recovered/Resolved]
  - Abasia [Recovered/Resolved]
  - Cardiomegaly [Not Recovered/Not Resolved]
  - Mitral valve incompetence [Unknown]
  - Dehydration [Recovered/Resolved]
  - Blood pressure decreased [Recovered/Resolved]
  - Fatigue [Unknown]
  - Cardiac disorder [Recovered/Resolved]
  - Rheumatoid arthritis [Not Recovered/Not Resolved]
  - Dyspnoea [Unknown]

NARRATIVE: CASE EVENT DATE: 201309
